FAERS Safety Report 24798935 (Version 1)
Quarter: 2025Q1

REPORT INFORMATION
  Report Type: Spontaneous
  Country: US (occurrence: US)
  Receive Date: 20250102
  Receipt Date: 20250102
  Transmission Date: 20250409
  Serious: Yes (Death, Other)
  Sender: AMGEN
  Company Number: US-AMGEN-USASP2024252648

PATIENT

DRUGS (2)
  1. INFLIXIMAB [Suspect]
     Active Substance: INFLIXIMAB
     Indication: Pneumonitis
     Route: 065
  2. PREDNISONE [Suspect]
     Active Substance: PREDNISONE
     Indication: Immunosuppressant drug therapy
     Route: 048

REACTIONS (17)
  - Pneumonitis [Unknown]
  - Death [Fatal]
  - Hepatitis [Unknown]
  - Myocarditis [Unknown]
  - Diabetes mellitus [Unknown]
  - Hyperthyroidism [Unknown]
  - Colitis microscopic [Unknown]
  - Pancreatitis [Unknown]
  - Nephrogenic diabetes insipidus [Unknown]
  - Pericarditis [Unknown]
  - Hypothyroidism [Unknown]
  - Gastroenteritis [Unknown]
  - Endocrine disorder [Unknown]
  - Systemic toxicity [Unknown]
  - Myositis [Unknown]
  - Disease progression [Unknown]
  - Off label use [Unknown]
